FAERS Safety Report 8445145-4 (Version None)
Quarter: 2012Q2

REPORT INFORMATION
  Report Type: 
  Country: None (occurrence: None)
  Receive Date: 20120618
  Receipt Date: 20120608
  Transmission Date: 20120825
  Serious: Yes (Hospitalization)
  Sender: FDA-Public Use
  Company Number: FR-ROCHE-1077083

PATIENT
  Age: 68 Year
  Sex: Male

DRUGS (9)
  1. MABTHERA [Suspect]
     Indication: ACQUIRED HAEMOPHILIA
     Dosage: SECOND INJECTION WAS PERFORMED ON 25/JAN/2012
     Dates: end: 20120125
  2. EUPRESSYL [Concomitant]
     Dates: start: 20120201
  3. BACTRIM DS [Concomitant]
     Indication: LYMPHOPENIA
     Dates: start: 20120201
  4. PREDNISONE TAB [Concomitant]
     Dates: start: 20120201
  5. NEXIUM [Suspect]
     Indication: ACQUIRED HAEMOPHILIA
     Route: 048
  6. CYCLOPHOSPHAMIDE [Suspect]
     Indication: ACQUIRED HAEMOPHILIA
     Dosage: PATIENT RECEIVED SECOND INJECTION ON: 15/FEB/2012
     Route: 048
     Dates: start: 20111201, end: 20120215
  7. BACTRIM DS [Concomitant]
     Dates: start: 20120501
  8. ENANTONE L P [Concomitant]
     Dosage: LAST INJECTION: FEB/2012
  9. PREDNISONE TAB [Concomitant]

REACTIONS (1)
  - NEUTROPENIA [None]
